FAERS Safety Report 6104722-6 (Version None)
Quarter: 2009Q1

REPORT INFORMATION
  Report Type: 
  Country: None (occurrence: None)
  Receive Date: 20090302
  Receipt Date: 20090216
  Transmission Date: 20090719
  Serious: Yes (Hospitalization)
  Sender: FDA-Public Use
  Company Number: GXBR2009US00671

PATIENT
  Sex: Female

DRUGS (1)
  1. ISONIAZID [Suspect]
     Dates: start: 20080701

REACTIONS (3)
  - HEPATIC FAILURE [None]
  - NECK PAIN [None]
  - PYREXIA [None]
